FAERS Safety Report 23694175 (Version 1)
Quarter: 2024Q2

REPORT INFORMATION
  Report Type: Other
  Country: US (occurrence: US)
  Receive Date: 20240401
  Receipt Date: 20240401
  Transmission Date: 20240716
  Serious: No
  Sender: FDA-Public Use
  Company Number: US-TEVA-VS-3150181

PATIENT
  Age: 78 Year
  Sex: Female

DRUGS (2)
  1. AUSTEDO [Suspect]
     Active Substance: DEUTETRABENAZINE
     Indication: Huntington^s disease
     Route: 048
     Dates: start: 20220902
  2. AUSTEDO [Suspect]
     Active Substance: DEUTETRABENAZINE
     Indication: Huntington^s disease
     Route: 065

REACTIONS (6)
  - Adverse event [Unknown]
  - Anxiety [Unknown]
  - Hypoacusis [Unknown]
  - Confusional state [Unknown]
  - Nasopharyngitis [Unknown]
  - Feeling abnormal [Unknown]
